FAERS Safety Report 9587987 (Version 1)
Quarter: 2013Q4

REPORT INFORMATION
  Report Type: Spontaneous
  Country: US (occurrence: US)
  Receive Date: 20131003
  Receipt Date: 20131003
  Transmission Date: 20140711
  Serious: No
  Sender: FDA-Public Use
  Company Number: US-AMGEN-USASP2012067711

PATIENT
  Age: 42 Year
  Sex: Female

DRUGS (3)
  1. ENBREL [Suspect]
     Indication: RHEUMATOID ARTHRITIS
     Dosage: 50 MG, QWK
     Route: 058
     Dates: start: 20120611, end: 20121019
  2. LISINOPRIL [Concomitant]
     Dosage: 2.5 MG, QD
     Route: 048
  3. ORENCIA [Concomitant]
     Dosage: 125 MG, QWK
     Route: 058

REACTIONS (1)
  - Drug ineffective [Not Recovered/Not Resolved]
